FAERS Safety Report 4415769-X (Version None)
Quarter: 2004Q2

REPORT INFORMATION
  Report Type: 
  Country: None (occurrence: None)
  Receive Date: 20040628
  Receipt Date: 20040503
  Transmission Date: 20050107
  Serious: Yes (Hospitalization)
  Sender: FDA-Public Use
  Company Number: 366567

PATIENT
  Age: 52 Year
  Sex: Male

DRUGS (2)
  1. CELLCEPT [Suspect]
     Indication: PROPHYLAXIS AGAINST TRANSPLANT REJECTION
     Dosage: 2 GRAM  DAILY
  2. CELLCEPT [Suspect]
     Indication: RENAL TRANSPLANT
     Dosage: 2 GRAM  DAILY

REACTIONS (3)
  - ARTHRALGIA [None]
  - HEADACHE [None]
  - INFECTION [None]
